FAERS Safety Report 9834281 (Version 1)
Quarter: 2014Q1

REPORT INFORMATION
  Report Type: Spontaneous
  Country: US (occurrence: US)
  Receive Date: 20140122
  Receipt Date: 20140122
  Transmission Date: 20141002
  Serious: Yes (Hospitalization)
  Sender: FDA-Public Use
  Company Number: US-SA-2014SA007759

PATIENT
  Age: 77 Year
  Sex: Female

DRUGS (2)
  1. LANTUS SOLOSTAR [Suspect]
     Indication: TYPE 2 DIABETES MELLITUS
     Dosage: DOSE:21 UNIT(S)
     Route: 058
  2. SOLOSTAR [Concomitant]

REACTIONS (7)
  - Adverse event [Unknown]
  - Anxiety [Unknown]
  - Asthenia [Unknown]
  - Nervousness [Unknown]
  - Urinary tract infection [Unknown]
  - Blood potassium abnormal [Unknown]
  - Dehydration [Unknown]
